FAERS Safety Report 7743452-1 (Version None)
Quarter: 2011Q3

REPORT INFORMATION
  Report Type: 
  Country: None (occurrence: None)
  Receive Date: 20110912
  Receipt Date: 20110905
  Transmission Date: 20111222
  Serious: Yes (Hospitalization)
  Sender: FDA-Public Use
  Company Number: JP-B.I. PHARMACEUTICALS,INC./RIDGEFIELD-2011-BP-16630NB

PATIENT
  Sex: Female
  Weight: 70 kg

DRUGS (8)
  1. UNISIA [Concomitant]
     Indication: HYPERTENSION
     Route: 048
  2. FERROUS CITRATE [Concomitant]
     Indication: ANAEMIA
     Route: 048
  3. BISOPROLOL FUMARATE [Concomitant]
     Indication: HYPERTENSION
     Route: 048
  4. RABEPRAZOLE SODIUM [Concomitant]
     Indication: GASTROOESOPHAGEAL REFLUX DISEASE
     Route: 048
  5. WARFARIN SODIUM [Concomitant]
     Indication: ATRIAL FIBRILLATION
     Route: 048
  6. LENDORMIN [Concomitant]
     Indication: INSOMNIA
     Route: 048
  7. METFORMIN HCL [Concomitant]
     Indication: DIABETES MELLITUS
     Route: 048
  8. PRADAXA [Suspect]
     Indication: ATRIAL FIBRILLATION
     Dosage: 300 MG
     Route: 048
     Dates: start: 20110328, end: 20110624

REACTIONS (1)
  - PULMONARY ALVEOLAR HAEMORRHAGE [None]
